FAERS Safety Report 15773237 (Version 3)
Quarter: 2019Q1

REPORT INFORMATION
  Report Type: Spontaneous
  Country: AU (occurrence: AU)
  Receive Date: 20181228
  Receipt Date: 20190107
  Transmission Date: 20190417
  Serious: Yes (Other)
  Sender: FDA-Public Use
  Company Number: PHHY2018AU190313

PATIENT
  Age: 77 Year
  Sex: Female

DRUGS (3)
  1. ACLASTA [Suspect]
     Active Substance: ZOLEDRONIC ACID
     Indication: OSTEOPENIA
     Route: 065
  2. COVERSYL                                /BEL/ [Concomitant]
     Active Substance: PERINDOPRIL
     Indication: PRODUCT USED FOR UNKNOWN INDICATION
     Dosage: 1 DF, QD
     Route: 065
  3. CRESTOR [Concomitant]
     Active Substance: ROSUVASTATIN CALCIUM
     Indication: PRODUCT USED FOR UNKNOWN INDICATION
     Dosage: 1 DF, QD
     Route: 065

REACTIONS (23)
  - Headache [Unknown]
  - Renal impairment [Unknown]
  - Abdominal pain upper [Unknown]
  - Asthenia [Not Recovered/Not Resolved]
  - Peripheral swelling [Unknown]
  - Toothache [Unknown]
  - C-reactive protein increased [Unknown]
  - Inflammation [Unknown]
  - Product use in unapproved indication [Unknown]
  - Blood urea increased [Unknown]
  - Hypophagia [Recovering/Resolving]
  - Insomnia [Unknown]
  - Abdominal discomfort [Unknown]
  - Decreased appetite [Not Recovered/Not Resolved]
  - Gastrointestinal pain [Unknown]
  - Weight decreased [Unknown]
  - Nausea [Unknown]
  - Influenza like illness [Unknown]
  - Cough [Not Recovered/Not Resolved]
  - Aphonia [Unknown]
  - Infection [Unknown]
  - Malaise [Not Recovered/Not Resolved]
  - Blood creatinine increased [Unknown]

NARRATIVE: CASE EVENT DATE: 2018
